FAERS Safety Report 25986851 (Version 1)
Quarter: 2025Q4

REPORT INFORMATION
  Report Type: Spontaneous
  Country: EU (occurrence: EU)
  Receive Date: 20251102
  Receipt Date: 20251102
  Transmission Date: 20260118
  Serious: Yes (Life-Threatening, Hospitalization, Other)
  Sender: JOHNSON AND JOHNSON
  Company Number: EU-SAMSUNG BIOEPIS-SB-2025-35628

PATIENT
  Age: 41 Year
  Sex: Male
  Weight: 190 kg

DRUGS (1)
  1. INFLIXIMAB [Suspect]
     Active Substance: INFLIXIMAB
     Indication: Colitis ulcerative
     Dosage: WEEK 0, 2, 6 AND 14;
     Route: 041

REACTIONS (4)
  - Acute hepatic failure [Unknown]
  - Drug-induced liver injury [Unknown]
  - Hepatic encephalopathy [Unknown]
  - Autoimmune hepatitis [Unknown]
